FAERS Safety Report 8776891 (Version 1)
Quarter: 2012Q4

REPORT INFORMATION
  Report Type: 
  Country: US (occurrence: US)
  Receive Date: 20120911
  Receipt Date: 20120911
  Transmission Date: 20130627
  Serious: Yes (Disabling)
  Sender: FDA-Public Use
  Company Number: US-JNJFOC-20120807323

PATIENT
  Sex: Female

DRUGS (10)
  1. STELARA [Suspect]
     Indication: PSORIASIS
     Route: 058
     Dates: start: 201103
  2. ULTRAM [Concomitant]
     Route: 065
  3. CLIMARA [Concomitant]
     Route: 065
  4. GLYCOPYRROLATE [Concomitant]
     Route: 065
  5. CYMBALTA [Concomitant]
     Route: 065
  6. AMLODIPINE [Concomitant]
     Route: 065
  7. XANAX [Concomitant]
     Route: 065
  8. NEURONTIN [Concomitant]
     Route: 065
  9. PREVACID [Concomitant]
     Route: 065
  10. ADDERALL [Concomitant]
     Route: 065

REACTIONS (1)
  - Herpes zoster [Recovered/Resolved with Sequelae]
